FAERS Safety Report 8939424 (Version 1)
Quarter: 2012Q4

REPORT INFORMATION
  Report Type: 
  Country: ES (occurrence: ES)
  Receive Date: 20121203
  Receipt Date: 20121203
  Transmission Date: 20130627
  Serious: Yes (Life-Threatening, Hospitalization)
  Sender: FDA-Public Use
  Company Number: ES-COVIDIEN/TYCO HEALTHCARE/MALLINCKRODT-T201204196

PATIENT
  Age: 57 Year
  Sex: Male

DRUGS (3)
  1. OPTIRAY 320 [Suspect]
     Indication: COMPUTERISED TOMOGRAM
     Dosage: UNK UNK, single
     Route: 042
     Dates: start: 20120914
  2. LEVEMIR [Concomitant]
     Indication: DIABETES MELLITUS
     Dosage: 100 U/ml
     Route: 058
  3. NOVORAPID [Concomitant]
     Indication: DIABETES MELLITUS
     Dosage: 100 U/ml
     Route: 058

REACTIONS (1)
  - Renal failure acute [Not Recovered/Not Resolved]
